FAERS Safety Report 4281929-4 (Version None)
Quarter: 2004Q1

REPORT INFORMATION
  Report Type: 
  Country: None (occurrence: None)
  Receive Date: 20040128
  Receipt Date: 20040116
  Transmission Date: 20041129
  Serious: Yes (Hospitalization)
  Sender: FDA-Public Use
  Company Number: 200400273

PATIENT
  Age: 59 Year
  Sex: Male

DRUGS (3)
  1. ALESION (EPINASTINE) [Suspect]
     Indication: DERMATITIS ALLERGIC
     Dosage: 20 MG DAILY PO
     Route: 048
     Dates: start: 20030901, end: 20030904
  2. MYSLEE [Concomitant]
     Indication: INSOMNIA
     Dosage: 5 MG DAILY PO
     Route: 048
     Dates: start: 20030601, end: 20030904
  3. LIPITOR [Suspect]
     Indication: HYPERLIPIDAEMIA
     Dosage: 20 MG DAILY PO
     Route: 048
     Dates: end: 20030904

REACTIONS (1)
  - AMNESIA [None]
